FAERS Safety Report 12779038 (Version 1)
Quarter: 2016Q3

REPORT INFORMATION
  Report Type: Spontaneous
  Country: US (occurrence: US)
  Receive Date: 20160922
  Receipt Date: 20160922
  Transmission Date: 20161109
  Serious: Yes (Hospitalization)
  Sender: FDA-Public Use
  Company Number: None

PATIENT
  Age: 29 Year
  Sex: Male
  Weight: 48 kg

DRUGS (1)
  1. CISPLATIN. [Suspect]
     Active Substance: CISPLATIN
     Dates: end: 20160829

REACTIONS (9)
  - Productive cough [None]
  - Therapy cessation [None]
  - Oral candidiasis [None]
  - Fatigue [None]
  - Oropharyngeal pain [None]
  - Oesophageal candidiasis [None]
  - Mucosal inflammation [None]
  - Pyrexia [None]
  - Depressed mood [None]

NARRATIVE: CASE EVENT DATE: 20160907
